FAERS Safety Report 9008564 (Version 2)
Quarter: 2013Q1

REPORT INFORMATION
  Report Type: Spontaneous
  Country: US (occurrence: US)
  Receive Date: 20130111
  Receipt Date: 20130218
  Transmission Date: 20140127
  Serious: Yes (Hospitalization)
  Sender: FDA-Public Use
  Company Number: US-PFIZER INC-2013008992

PATIENT
  Age: 81 Year
  Sex: Male

DRUGS (4)
  1. TIGECYCLINE [Suspect]
     Indication: STAPHYLOCOCCAL INFECTION
     Dosage: 100 MG, 1X/DAY
     Route: 042
     Dates: start: 20121228
  2. PREDNISONE [Concomitant]
     Dosage: 15 MG, 1X/DAY
     Route: 048
  3. CITALOPRAM [Concomitant]
     Dosage: 30 MG, 1X/DAY
     Route: 048
  4. OXYCONTIN [Concomitant]
     Dosage: 10 MG, UNK

REACTIONS (1)
  - Diarrhoea [Recovered/Resolved]
